FAERS Safety Report 11762727 (Version 1)
Quarter: 2015Q4

REPORT INFORMATION
  Report Type: Spontaneous
  Country: US (occurrence: US)
  Receive Date: 20151120
  Receipt Date: 20151120
  Transmission Date: 20160304
  Serious: No
  Sender: FDA-Public Use
  Company Number: US-ELI_LILLY_AND_COMPANY-US201211000230

PATIENT
  Age: 62 Year
  Sex: Female

DRUGS (2)
  1. NEOSPORIN                               /SCH/ [Concomitant]
     Indication: INJECTION SITE PRURITUS
  2. FORTEO [Suspect]
     Active Substance: TERIPARATIDE
     Indication: OSTEOPOROSIS
     Dosage: 20 UG, QD
     Route: 065
     Dates: start: 20121017

REACTIONS (17)
  - Blood test abnormal [Unknown]
  - Fatigue [Unknown]
  - Injection site erythema [Not Recovered/Not Resolved]
  - Sleep disorder due to a general medical condition [Unknown]
  - Nausea [Unknown]
  - Blood urine present [Unknown]
  - Dizziness [Unknown]
  - Headache [Recovering/Resolving]
  - Muscle spasms [Unknown]
  - Overdose [Unknown]
  - Sciatic nerve injury [Unknown]
  - Gait disturbance [Unknown]
  - Limb discomfort [Unknown]
  - Renal impairment [Unknown]
  - Sciatica [Unknown]
  - Hypersomnia [Recovering/Resolving]
  - Injection site pruritus [Not Recovered/Not Resolved]

NARRATIVE: CASE EVENT DATE: 20121029
